FAERS Safety Report 4827576-4 (Version None)
Quarter: 2005Q4

REPORT INFORMATION
  Report Type: 
  Country: None (occurrence: None)
  Receive Date: 20051114
  Receipt Date: 20051017
  Transmission Date: 20060501
  Serious: Yes (Hospitalization, Other)
  Sender: FDA-Public Use
  Company Number: FR-BRISTOL-MYERS SQUIBB COMPANY-13148697

PATIENT
  Age: 40 Year
  Sex: Female
  Weight: 70 kg

DRUGS (4)
  1. ABILIFY [Suspect]
     Indication: SCHIZOPHRENIA
     Route: 048
     Dates: start: 20050527, end: 20050804
  2. TERCIAN [Concomitant]
     Dates: start: 20050516
  3. EFFEXOR [Concomitant]
     Dates: start: 20050516
  4. IMOVANE [Concomitant]
     Dates: start: 20050516

REACTIONS (3)
  - CONDITION AGGRAVATED [None]
  - DELUSION [None]
  - HALLUCINATION [None]
